FAERS Safety Report 7038429-8 (Version None)
Quarter: 2010Q4

REPORT INFORMATION
  Report Type: 
  Country: None (occurrence: None)
  Receive Date: 20101011
  Receipt Date: 20100216
  Transmission Date: 20110411
  Serious: Yes (Other)
  Sender: FDA-Public Use
  Company Number: US-PFIZER INC-2010021064

PATIENT
  Sex: Female
  Weight: 81.633 kg

DRUGS (4)
  1. NEURONTIN [Suspect]
     Indication: ARTHRITIS
     Dosage: 100 MG, DAILY
     Route: 048
     Dates: start: 20091101, end: 20100214
  2. GEODON [Concomitant]
     Dosage: UNK
  3. LOVASTATIN [Concomitant]
     Indication: BLOOD CHOLESTEROL INCREASED
     Dosage: UNK
  4. LISINOPRIL [Concomitant]
     Indication: HYPERTENSION
     Dosage: UNK

REACTIONS (1)
  - PARAESTHESIA [None]
